FAERS Safety Report 9282943 (Version 3)
Quarter: 2013Q3

REPORT INFORMATION
  Report Type: Spontaneous
  Country: US (occurrence: US)
  Receive Date: 20130510
  Receipt Date: 20130701
  Transmission Date: 20140515
  Serious: Yes (Other)
  Sender: FDA-Public Use
  Company Number: US-PERRIGO-13US004810

PATIENT
  Sex: Male
  Weight: 104.31 kg

DRUGS (10)
  1. DIPHENHYDRAMINE HYDROCHLORIDE 25 MG 479 [Suspect]
     Indication: INSOMNIA
     Dosage: 50 MG, QHS
     Route: 048
     Dates: start: 2006, end: 20130430
  2. QUINAPRIL [Concomitant]
     Indication: HYPERTENSION
     Dosage: UNK, UNK
     Route: 048
     Dates: start: 2011
  3. HYDROCHLOROTHIAZIDE [Concomitant]
     Indication: HYPERTENSION
     Dosage: UNK, UNK
     Route: 048
     Dates: start: 2011
  4. CLONIDINE [Concomitant]
     Indication: HYPERTENSION
     Dosage: 0.2 MG, UNK
     Route: 065
     Dates: start: 2011
  5. METOPROLOL [Concomitant]
     Indication: HYPERTENSION
     Dosage: UNK, UNK
     Route: 048
     Dates: start: 2011
  6. TAMSULOSIN [Concomitant]
     Indication: HYPERTENSION
     Dosage: UNK, UNK
     Route: 048
     Dates: start: 2011
  7. RANEXA [Concomitant]
     Indication: ANGINA PECTORIS
     Dosage: UNK, UNK
     Route: 048
     Dates: start: 2011
  8. CLOPIDOGREL [Concomitant]
     Indication: ATRIAL FIBRILLATION
     Dosage: UNK, UNK
     Route: 048
     Dates: start: 2011
  9. AMLODIPINE [Concomitant]
     Indication: HYPERTENSION
     Dosage: UNK, UNK
     Route: 048
     Dates: start: 2011
  10. PROPAFENONE HCL [Concomitant]
     Indication: CARDIAC DISORDER
     Route: 048
     Dates: start: 2011

REACTIONS (2)
  - Hallucination [Recovered/Resolved]
  - Off label use [Recovered/Resolved]
